FAERS Safety Report 23022081 (Version 4)
Quarter: 2024Q2

REPORT INFORMATION
  Report Type: Spontaneous
  Country: JP (occurrence: JP)
  Receive Date: 20231003
  Receipt Date: 20240606
  Transmission Date: 20240716
  Serious: Yes (Death, Hospitalization)
  Sender: FDA-Public Use
  Company Number: JP-DSJP-DSJ-2023-140251AA

PATIENT
  Age: 71 Year
  Sex: Female
  Weight: 50.6 kg

DRUGS (9)
  1. ENHERTU [Suspect]
     Active Substance: FAM-TRASTUZUMAB DERUXTECAN-NXKI
     Indication: HER2 low breast cancer
     Dosage: 5.4 MG/KG, SINGLE
     Route: 041
     Dates: start: 20230824, end: 20230824
  2. HYDROMORPHONE HYDROCHLORIDE [Concomitant]
     Active Substance: HYDROMORPHONE HYDROCHLORIDE
     Indication: Cancer pain
     Dosage: 4 MG, QD
     Route: 048
     Dates: start: 20230420, end: 20230919
  3. LOXOPROFEN SODIUM [Concomitant]
     Active Substance: LOXOPROFEN SODIUM
     Indication: Cancer pain
     Dosage: 60 MG, TID
     Route: 065
  4. TEPRENONE [Concomitant]
     Active Substance: TEPRENONE
     Indication: Cancer pain
     Dosage: 50 MG, TID
     Route: 065
  5. LANSOPRAZOLE [Concomitant]
     Active Substance: LANSOPRAZOLE
     Indication: Cancer pain
     Dosage: 15 MG, QD
     Route: 065
  6. DECADRON [Concomitant]
     Active Substance: DEXAMETHASONE
     Indication: Gastrointestinal disorder
     Dosage: 4 MG, BID
     Route: 065
     Dates: start: 20230825, end: 20230919
  7. ZYPREXA [Concomitant]
     Active Substance: OLANZAPINE
     Indication: Gastrointestinal disorder
     Dosage: 2.5 MG, QD
     Route: 065
     Dates: start: 20230825, end: 20230919
  8. ALFACALCIDOL [Concomitant]
     Active Substance: ALFACALCIDOL
     Indication: Product used for unknown indication
     Dosage: 1 UG, QD
     Route: 065
     Dates: start: 20230606
  9. PROCHLORPERAZINE MALEATE [Concomitant]
     Active Substance: PROCHLORPERAZINE MALEATE
     Indication: Product used for unknown indication
     Dosage: 5 MG, TID
     Route: 065
     Dates: start: 20230512, end: 20230822

REACTIONS (1)
  - Interstitial lung disease [Fatal]

NARRATIVE: CASE EVENT DATE: 20230918
